FAERS Safety Report 8889308 (Version 10)
Quarter: 2014Q1

REPORT INFORMATION
  Report Type: Report from Study
  Country: CA (occurrence: CA)
  Receive Date: 20121106
  Receipt Date: 20140316
  Transmission Date: 20141002
  Serious: Yes (Life-Threatening, Hospitalization, Other)
  Sender: FDA-Public Use
  Company Number: CA-CELGENEUS-028-CCAZA-12071054

PATIENT
  Age: 85 Year
  Sex: Male
  Weight: 75.2 kg

DRUGS (27)
  1. AZACITIDINE INJECTABLE [Suspect]
     Indication: ACUTE MYELOID LEUKAEMIA
     Dosage: 75 MILLIGRAM/SQ. METER
     Route: 058
     Dates: start: 20120228, end: 20120305
  2. AZACITIDINE INJECTABLE [Suspect]
     Dosage: 75 MILLIGRAM/SQ. METER
     Route: 058
     Dates: start: 20120620, end: 20120626
  3. AZACITIDINE INJECTABLE [Suspect]
     Route: 058
     Dates: end: 20120808
  4. NORMAL SALINE [Concomitant]
     Indication: HYPOTENSION
     Dosage: 500 MILLILITER
     Route: 041
     Dates: start: 20120229, end: 20120229
  5. NORMAL SALINE [Concomitant]
     Indication: DEHYDRATION
     Dosage: 7 LITERS
     Route: 041
     Dates: start: 20120709, end: 20120710
  6. LACTULOSE [Concomitant]
     Indication: CONSTIPATION PROPHYLAXIS
     Dosage: 15-30ML
     Route: 048
     Dates: start: 20120210
  7. LACTULOSE [Concomitant]
     Route: 048
     Dates: start: 20120711, end: 20120713
  8. LORATADINE [Concomitant]
     Indication: PROPHYLAXIS
     Route: 048
     Dates: start: 20120229
  9. ONDANSETRON [Concomitant]
     Indication: PROPHYLAXIS OF NAUSEA AND VOMITING
     Route: 048
     Dates: start: 20120228
  10. SENOKOT [Concomitant]
     Indication: CONSTIPATION PROPHYLAXIS
     Route: 048
     Dates: start: 20120210, end: 20120430
  11. SENOKOT [Concomitant]
     Dosage: 4 TABLET
     Route: 048
     Dates: start: 20120501
  12. SENOKOT [Concomitant]
     Route: 048
     Dates: start: 20120711, end: 20120713
  13. COLACE [Concomitant]
     Indication: CONSTIPATION
     Dosage: 1-2
     Route: 048
     Dates: start: 201205
  14. COLACE [Concomitant]
     Dosage: 208 MILLIGRAM
     Route: 048
     Dates: start: 20120713, end: 20120713
  15. DULCOLAX WITH GLYCERINE [Concomitant]
     Indication: CONSTIPATION
     Route: 054
     Dates: start: 20120718, end: 20120718
  16. KCL ELIXIR [Concomitant]
     Indication: HYPOKALAEMIA
     Dosage: 25 MILLIEQUIVALENTS
     Route: 048
     Dates: start: 20120712, end: 20120712
  17. KCL ELIXIR [Concomitant]
     Dosage: 25 MILLIEQUIVALENTS
     Route: 048
     Dates: start: 20120714, end: 20120716
  18. LASIX [Concomitant]
     Indication: OEDEMA
     Dosage: 40 MILLIGRAM
     Route: 048
     Dates: start: 20120719, end: 20120719
  19. TYLENOL [Concomitant]
     Indication: PYREXIA
     Dosage: 950 MILLIGRAM
     Route: 048
     Dates: start: 20120709, end: 20120709
  20. TYLENOL [Concomitant]
     Dosage: 2600 MILLIGRAM
     Route: 048
     Dates: start: 20120709, end: 20120725
  21. DOPAMINE [Concomitant]
     Indication: ABDOMINAL PAIN UPPER
     Dosage: 2-5MG/KG
     Route: 041
     Dates: start: 20120709, end: 20120709
  22. VITAMIN K [Concomitant]
     Indication: SUPPLEMENTATION THERAPY
     Dosage: 10 MILLIGRAM
     Route: 041
     Dates: start: 20120709, end: 20120709
  23. LEVOFLOXACIN [Concomitant]
     Indication: PNEUMONIA
     Dosage: 750 MILLIGRAM
     Route: 048
     Dates: start: 20120313, end: 20120319
  24. LEVOFLOXACIN [Concomitant]
     Indication: SEPTIC SHOCK
     Route: 041
     Dates: start: 20120711, end: 20120712
  25. CEPHALEXIN [Concomitant]
     Indication: PRODUCT USED FOR UNKNOWN INDICATION
     Dosage: 2000 MILLIGRAM
     Route: 048
     Dates: start: 20120720, end: 20120723
  26. PLATELETS [Concomitant]
     Indication: TRANSFUSION
     Dosage: 2 UNITS
     Route: 041
     Dates: start: 20120710
  27. PRBC [Concomitant]
     Indication: TRANSFUSION
     Dosage: 2 UNITS
     Route: 041
     Dates: start: 20120710

REACTIONS (7)
  - Septic shock [Recovered/Resolved]
  - Bronchopneumonia [Recovered/Resolved]
  - Thrombocytopenia [Not Recovered/Not Resolved]
  - Anaemia [Not Recovered/Not Resolved]
  - Epistaxis [Recovered/Resolved]
  - Cholecystitis acute [Recovered/Resolved]
  - Hypokalaemia [Recovered/Resolved]
